FAERS Safety Report 5808446-1 (Version None)
Quarter: 2008Q3

REPORT INFORMATION
  Report Type: 
  Country: None (occurrence: None)
  Receive Date: 20080714
  Receipt Date: 20080626
  Transmission Date: 20090109
  Serious: Yes (Death, Hospitalization)
  Sender: FDA-Public Use
  Company Number: US-JNJFOC-20080601692

PATIENT
  Sex: Male
  Weight: 65.32 kg

DRUGS (6)
  1. RISPERDAL CONSTA [Suspect]
     Indication: DEMENTIA
     Dosage: THE PATIENT TOOK ONE DOSE OF RISPERDAL CONSTA AFTER WHICH PATIENT BECAME INCREASINGLY AGIATATED.
     Route: 030
  2. RISPERDAL [Suspect]
     Indication: DEMENTIA
     Route: 048
  3. LIPITON [Concomitant]
     Indication: BLOOD CHOLESTEROL INCREASED
  4. HALDOL [Concomitant]
  5. ATIVAN [Concomitant]
  6. AMBIEN [Concomitant]

REACTIONS (5)
  - AGITATION [None]
  - BLOOD GLUCOSE INCREASED [None]
  - CEREBELLAR INFARCTION [None]
  - CEREBROVASCULAR ACCIDENT [None]
  - DEATH [None]
